FAERS Safety Report 5070558-0 (Version None)
Quarter: 2006Q3

REPORT INFORMATION
  Report Type: 
  Country: None (occurrence: None)
  Receive Date: 20060804
  Receipt Date: 20040915
  Transmission Date: 20061208
  Serious: No
  Sender: FDA-Public Use
  Company Number: US-GLAXOSMITHKLINE-A0525838A

PATIENT
  Age: 43 Year
  Sex: Female

DRUGS (1)
  1. NICORETTE (MINT) [Suspect]
     Dates: start: 20040504

REACTIONS (8)
  - DENTAL CARIES [None]
  - DYSPEPSIA [None]
  - ORAL PAIN [None]
  - SOFT TISSUE INJURY [None]
  - TOOTH ABSCESS [None]
  - TOOTH DISORDER [None]
  - TOOTH FRACTURE [None]
  - TOOTH INJURY [None]
